FAERS Safety Report 5276797-8 (Version None)
Quarter: 2007Q1

REPORT INFORMATION
  Report Type: 
  Country: None (occurrence: None)
  Receive Date: 20070327
  Receipt Date: 20070319
  Transmission Date: 20070707
  Serious: Yes (Life-Threatening)
  Sender: FDA-Public Use
  Company Number: US-JNJFOC-20070304741

PATIENT
  Sex: Male
  Weight: 77.11 kg

DRUGS (2)
  1. HALDOL SOLUTAB [Suspect]
     Indication: MANIA
     Route: 048
  2. HIV MEDICATION [Concomitant]
     Indication: HIV INFECTION

REACTIONS (2)
  - DEPRESSION [None]
  - SUICIDE ATTEMPT [None]
